FAERS Safety Report 10052073 (Version 2)
Quarter: 2014Q2

REPORT INFORMATION
  Report Type: Report from Study
  Country: VE (occurrence: VE)
  Receive Date: 20140402
  Receipt Date: 20140407
  Transmission Date: 20141212
  Serious: Yes (Other)
  Sender: FDA-Public Use
  Company Number: VE-ROCHE-1374671

PATIENT
  Age: 42 Year
  Sex: Female

DRUGS (5)
  1. XOLAIR [Suspect]
     Indication: ASTHMA
     Dosage: DOCTOR PRESCRIBED DOSE OF 450MG (3 AMPOULES) MONTHLY. LAST DOSE WAS GIVEN AS 2 AMPOULES (300MG) FOLL
     Route: 058
     Dates: start: 201311, end: 201403
  2. XOLAIR [Suspect]
     Dosage: 1 DF (1 AMPOULE)
     Route: 030
  3. XOLAIR [Suspect]
     Route: 058
     Dates: start: 201403, end: 201403
  4. OMEPRAZOLE [Concomitant]
     Route: 065
  5. MONTELUKAST [Concomitant]
     Indication: ASPHYXIA
     Route: 065

REACTIONS (2)
  - Asphyxia [Recovered/Resolved]
  - Malaise [Unknown]
